FAERS Safety Report 14458699 (Version 1)
Quarter: 2018Q1

REPORT INFORMATION
  Report Type: Spontaneous
  Country: FI (occurrence: FI)
  Receive Date: 20180130
  Receipt Date: 20180130
  Transmission Date: 20180509
  Serious: Yes (Death, Other)
  Sender: FDA-Public Use
  Company Number: FI-009507513-1801FIN005763

PATIENT
  Age: 84 Year
  Sex: Male
  Weight: 55 kg

DRUGS (1)
  1. ZINPLAVA [Suspect]
     Active Substance: BEZLOTOXUMAB
     Dosage: UNK
     Dates: start: 20170711, end: 20170711

REACTIONS (2)
  - Stem cell transplant [Unknown]
  - Death [Fatal]

NARRATIVE: CASE EVENT DATE: 201711
